FAERS Safety Report 23285352 (Version 1)
Quarter: 2023Q4

REPORT INFORMATION
  Report Type: Spontaneous
  Country: GB (occurrence: None)
  Receive Date: 20231211
  Receipt Date: 20231211
  Transmission Date: 20240110
  Serious: Yes (Other)
  Sender: FDA-Public Use
  Company Number: 2023A275968

PATIENT
  Age: 84 Year
  Sex: Male
  Weight: 92 kg

DRUGS (11)
  1. DAPAGLIFLOZIN [Suspect]
     Active Substance: DAPAGLIFLOZIN
     Dosage: 10 EVERY DAY
     Dates: start: 20231123
  2. ASPIRIN [Concomitant]
     Active Substance: ASPIRIN
     Dosage: 1 EVERY DAY
     Dates: start: 20230109
  3. ATORVASTATIN [Concomitant]
     Active Substance: ATORVASTATIN
     Indication: Hypercholesterolaemia
     Dosage: 1 EVERY DAY
     Dates: start: 20230803
  4. BECLOMETHASONE DIPROPIONATE [Concomitant]
     Active Substance: BECLOMETHASONE DIPROPIONATE
     Dosage: 2 PUFFS TWO TIMES A DAY
     Dates: start: 20181102
  5. BIMATOPROST [Concomitant]
     Active Substance: BIMATOPROST
     Dosage: 2 EVERY DAY AT NIGHT TO BOTH EYES.
     Dates: start: 20230831
  6. BISOPROLOL [Concomitant]
     Active Substance: BISOPROLOL\BISOPROLOL FUMARATE
     Dosage: 1 IN THE EVENING EVERY DAY
     Dates: start: 20170228
  7. FUROSEMIDE [Concomitant]
     Active Substance: FUROSEMIDE
     Dosage: 2 TWO TIMES A DAY
     Dates: start: 20220712
  8. LISINOPRIL [Concomitant]
     Active Substance: LISINOPRIL
     Dosage: 2 AT NIGHT EVERY DAY
     Dates: start: 20191030
  9. MONOMAX XL [Concomitant]
     Dosage: 0.5 EVERY DAY
     Dates: start: 20160106, end: 20231123
  10. OMEPRAZOLE [Concomitant]
     Active Substance: OMEPRAZOLE
     Dosage: 1 EVERY DAY IN THE MONRING TO PROTECT STOM...
     Dates: start: 20181012
  11. ACETAMINOPHEN [Concomitant]
     Active Substance: ACETAMINOPHEN
     Dosage: 2
     Dates: start: 20160106

REACTIONS (4)
  - Hypotension [Recovered/Resolved]
  - Asthenia [Unknown]
  - Gait disturbance [Unknown]
  - Vision blurred [Unknown]
